FAERS Safety Report 6129193-5 (Version None)
Quarter: 2009Q1

REPORT INFORMATION
  Report Type: 
  Country: None (occurrence: None)
  Receive Date: 20090320
  Receipt Date: 20090311
  Transmission Date: 20090719
  Serious: Yes (Hospitalization)
  Sender: FDA-Public Use
  Company Number: DAV-AE-MTX-09-022

PATIENT
  Age: 65 Year
  Sex: Female

DRUGS (1)
  1. METHOTREXATE [Suspect]
     Indication: RHEUMATOID ARTHRITIS

REACTIONS (8)
  - ANGIOPATHY [None]
  - BLOOD LACTATE DEHYDROGENASE INCREASED [None]
  - FIBROSIS [None]
  - HYPERGAMMAGLOBULINAEMIA [None]
  - HYPOALBUMINAEMIA [None]
  - PANCYTOPENIA [None]
  - SPLENOMEGALY [None]
  - VISCERAL LEISHMANIASIS [None]
